FAERS Safety Report 6046312-X (Version None)
Quarter: 2009Q1

REPORT INFORMATION
  Report Type: 
  Country: None (occurrence: None)
  Receive Date: 20090122
  Receipt Date: 20090121
  Transmission Date: 20090719
  Serious: Yes (Death)
  Sender: FDA-Public Use
  Company Number: US-RB-008550-09

PATIENT
  Age: 92 Year
  Sex: Male

DRUGS (1)
  1. MUCINEX [Suspect]
     Dosage: USED EVERY DAY
     Route: 065

REACTIONS (1)
  - COUGH [None]
